FAERS Safety Report 16539691 (Version 1)
Quarter: 2019Q3

REPORT INFORMATION
  Report Type: Other
  Country: CA (occurrence: CA)
  Receive Date: 20190708
  Receipt Date: 20190708
  Transmission Date: 20191004
  Serious: Yes (Other)
  Sender: FDA-Public Use
  Company Number: CA-PFIZER INC-2019284599

PATIENT
  Age: 12 Year
  Sex: Male

DRUGS (3)
  1. CISPLATIN. [Suspect]
     Active Substance: CISPLATIN
     Indication: PANCREATIC CARCINOMA METASTATIC
     Dosage: 100 MG/M2, UNK
     Route: 042
  2. VINCRISTINE SULFATE. [Suspect]
     Active Substance: VINCRISTINE SULFATE
     Indication: PANCREATIC CARCINOMA METASTATIC
     Dosage: 1.5 MG/M2, CYCLIC
     Route: 065
  3. FLUOROURACIL. [Suspect]
     Active Substance: FLUOROURACIL
     Indication: PANCREATIC CARCINOMA METASTATIC
     Dosage: 600 MG/M2, EVERY 3 WEEKS
     Route: 065

REACTIONS (3)
  - Neuropathy peripheral [Unknown]
  - Deafness [Unknown]
  - Nephropathy toxic [Unknown]
